FAERS Safety Report 17625511 (Version 2)
Quarter: 2020Q2

REPORT INFORMATION
  Report Type: Report from Study
  Country: None (occurrence: US)
  Receive Date: 20200404
  Receipt Date: 20200507
  Transmission Date: 20200713
  Serious: Yes (Hospitalization, Other)
  Sender: FDA-Public Use
  Company Number: US-ABBVIE-19K-163-2833074-00

PATIENT
  Age: 70 Year
  Sex: Female

DRUGS (2)
  1. HUMIRA [Suspect]
     Active Substance: ADALIMUMAB
     Indication: PSORIASIS
     Route: 058
     Dates: end: 2019
  2. HUMIRA [Suspect]
     Active Substance: ADALIMUMAB
     Dosage: CITRATE FREE
     Route: 058

REACTIONS (21)
  - Gait disturbance [Recovering/Resolving]
  - Road traffic accident [Recovering/Resolving]
  - Psoriasis [Not Recovered/Not Resolved]
  - Fall [Unknown]
  - Device issue [Unknown]
  - Brain injury [Recovered/Resolved]
  - Upper limb fracture [Recovered/Resolved]
  - Product dispensing error [Recovered/Resolved]
  - Blood potassium decreased [Unknown]
  - Sinusitis [Unknown]
  - Rib fracture [Unknown]
  - Wrong technique in product usage process [Recovered/Resolved]
  - Accident [Unknown]
  - Aortic valve replacement [Unknown]
  - Incontinence [Unknown]
  - Head injury [Unknown]
  - Balance disorder [Unknown]
  - Therapeutic product effect incomplete [Recovering/Resolving]
  - Brain injury [Unknown]
  - Musculoskeletal disorder [Unknown]
  - Blood sodium decreased [Unknown]

NARRATIVE: CASE EVENT DATE: 2016
